FAERS Safety Report 5383703-4 (Version None)
Quarter: 2007Q3

REPORT INFORMATION
  Report Type: 
  Country: None (occurrence: None)
  Receive Date: 20070706
  Receipt Date: 20070622
  Transmission Date: 20080115
  Serious: No
  Sender: FDA-Public Use
  Company Number: 26763

PATIENT
  Age: 72 Year
  Sex: Male
  Weight: 109.7705 kg

DRUGS (2)
  1. NIASPAN [Suspect]
     Indication: BLOOD CHOLESTEROL INCREASED
     Dosage: 1500 MG QHS PO
     Route: 048
     Dates: start: 20070621, end: 20070621
  2. ASPIRIN [Concomitant]

REACTIONS (1)
  - INCORRECT DOSE ADMINISTERED [None]
